FAERS Safety Report 6374032-0 (Version None)
Quarter: 2009Q3

REPORT INFORMATION
  Report Type: 
  Country: None (occurrence: None)
  Receive Date: 20090924
  Receipt Date: 20090626
  Transmission Date: 20100115
  Serious: Yes (Hospitalization)
  Sender: FDA-Public Use
  Company Number: US-ASTRAZENECA-2009UW18056

PATIENT
  Age: 67 Year
  Sex: Female
  Weight: 63.5 kg

DRUGS (7)
  1. SEROQUEL [Suspect]
     Indication: BIPOLAR DISORDER
     Route: 048
     Dates: start: 20090101
  2. SEROQUEL [Suspect]
     Indication: DEPRESSION
     Route: 048
     Dates: start: 20090101
  3. SEROQUEL [Suspect]
     Route: 048
     Dates: start: 20060101, end: 20090101
  4. SEROQUEL [Suspect]
     Route: 048
     Dates: start: 20060101, end: 20090101
  5. SEROQUEL [Suspect]
     Route: 048
     Dates: start: 20090101
  6. SEROQUEL [Suspect]
     Route: 048
     Dates: start: 20090101
  7. ENSAM [Concomitant]
     Route: 048

REACTIONS (5)
  - BLOOD CHOLESTEROL INCREASED [None]
  - BLOOD TRIGLYCERIDES INCREASED [None]
  - DEPRESSION [None]
  - FATIGUE [None]
  - WEIGHT INCREASED [None]
